FAERS Safety Report 10879930 (Version 11)
Quarter: 2015Q4

REPORT INFORMATION
  Report Type: Spontaneous
  Country: US (occurrence: US)
  Receive Date: 20150302
  Receipt Date: 20151105
  Transmission Date: 20160304
  Serious: Yes (Death, Hospitalization)
  Sender: FDA-Public Use
  Company Number: US-PFIZER INC-2015069758

PATIENT
  Age: 66 Year
  Sex: Female
  Weight: 47 kg

DRUGS (13)
  1. SUTENT [Suspect]
     Active Substance: SUNITINIB MALATE
     Dosage: 50 MG, 2X/WEEK ( TUES / THURS)
     Dates: start: 20150301, end: 20150603
  2. AZOPT [Concomitant]
     Active Substance: BRINZOLAMIDE
     Dosage: UNK GTT
     Route: 047
  3. SUTENT [Suspect]
     Active Substance: SUNITINIB MALATE
     Indication: THYROID CANCER STAGE IV
     Dosage: 50 MG, CYCLIC (EVERY DAY EVERY OTHER DAY 3 TO 2 A WEEK)
     Dates: start: 20100729
  4. NYSTATIN. [Concomitant]
     Active Substance: NYSTATIN
     Dosage: UNK
     Dates: start: 2015
  5. FERROUS SULFATE [Concomitant]
     Active Substance: FERROUS SULFATE\FERROUS SULFATE, DRIED
     Dosage: UNK
     Dates: end: 201507
  6. ALPHAGAN P [Concomitant]
     Active Substance: BRIMONIDINE TARTRATE
     Dosage: UNK GTT
     Route: 047
  7. TRAVATAN [Concomitant]
     Active Substance: TRAVOPROST
     Dosage: UNK GTT
     Route: 047
  8. LEVOTHYROXINE. [Concomitant]
     Active Substance: LEVOTHYROXINE
     Dosage: UNK
     Dates: start: 199505
  9. SUTENT [Suspect]
     Active Substance: SUNITINIB MALATE
     Dosage: 50 MG, DAILY
     Dates: start: 20141226, end: 20150218
  10. SPIRIVA [Concomitant]
     Active Substance: TIOTROPIUM BROMIDE MONOHYDRATE
     Dosage: UNK
     Route: 055
     Dates: start: 201410
  11. PRILOSEC [Concomitant]
     Active Substance: OMEPRAZOLE MAGNESIUM
     Dosage: UNK
     Dates: start: 2014, end: 201504
  12. FLUDROCORTISONE [Concomitant]
     Active Substance: FLUDROCORTISONE
     Dosage: UNK
     Dates: start: 2014
  13. PROAIR HFA [Concomitant]
     Active Substance: ALBUTEROL SULFATE
     Dosage: UNK
     Route: 055
     Dates: start: 201410

REACTIONS (12)
  - Hypophagia [Not Recovered/Not Resolved]
  - Asthenia [Recovered/Resolved]
  - Dry skin [Not Recovered/Not Resolved]
  - Cough [Not Recovered/Not Resolved]
  - Muscular weakness [Recovered/Resolved]
  - Weight gain poor [Recovered/Resolved]
  - Decreased appetite [Recovered/Resolved]
  - Glossodynia [Recovered/Resolved]
  - Burning sensation [Recovered/Resolved]
  - Product use issue [Unknown]
  - Death [Fatal]
  - Dysgeusia [Recovered/Resolved]

NARRATIVE: CASE EVENT DATE: 201007
